FAERS Safety Report 4433995-0 (Version None)
Quarter: 2004Q3

REPORT INFORMATION
  Report Type: 
  Country: None (occurrence: None)
  Receive Date: 20040825
  Receipt Date: 20040810
  Transmission Date: 20050211
  Serious: Yes (Other)
  Sender: FDA-Public Use
  Company Number: US_0408104555

PATIENT
  Age: 34 Year
  Sex: Male

DRUGS (1)
  1. CEFACLOR [Suspect]
     Indication: INFECTION PROPHYLAXIS
     Dosage: 250 MG

REACTIONS (3)
  - OEDEMA PERIPHERAL [None]
  - PALPITATIONS [None]
  - PRURITUS [None]
